FAERS Safety Report 16967691 (Version 1)
Quarter: 2019Q4

REPORT INFORMATION
  Report Type: Spontaneous
  Country: US (occurrence: US)
  Receive Date: 20191028
  Receipt Date: 20191028
  Transmission Date: 20200122
  Serious: No
  Sender: FDA-Public Use
  Company Number: US-ELI_LILLY_AND_COMPANY-US201910002128

PATIENT
  Sex: Female

DRUGS (2)
  1. HUMATROPE [Suspect]
     Active Substance: SOMATROPIN
     Indication: PRODUCT USED FOR UNKNOWN INDICATION
     Dosage: 0.8 MG, UNKNOWN
     Route: 058
     Dates: start: 20190916
  2. HUMATROPE [Suspect]
     Active Substance: SOMATROPIN
     Dosage: 0.8 MG, UNKNOWN
     Route: 058

REACTIONS (2)
  - Injection site pain [Not Recovered/Not Resolved]
  - Fatigue [Not Recovered/Not Resolved]

NARRATIVE: CASE EVENT DATE: 20190916
